FAERS Safety Report 12517942 (Version 1)
Quarter: 2016Q2

REPORT INFORMATION
  Report Type: Spontaneous
  Country: JP (occurrence: JP)
  Receive Date: 20160630
  Receipt Date: 20160630
  Transmission Date: 20160815
  Serious: Yes (Other)
  Sender: FDA-Public Use
  Company Number: JP-ABBVIE-16P-087-1661260-00

PATIENT
  Age: 80 Year
  Sex: Female

DRUGS (1)
  1. VIEKIRAX [Suspect]
     Active Substance: OMBITASVIR\PARITAPREVIR\RITONAVIR
     Indication: HEPATITIS C
     Route: 048

REACTIONS (4)
  - Dementia [Recovering/Resolving]
  - Somnolence [Recovering/Resolving]
  - Hepatic function abnormal [Recovering/Resolving]
  - Basedow^s disease [Recovering/Resolving]
